FAERS Safety Report 9378378 (Version 2)
Quarter: 2013Q3

REPORT INFORMATION
  Report Type: Spontaneous
  Country: US (occurrence: US)
  Receive Date: 20130701
  Receipt Date: 20130718
  Transmission Date: 20140515
  Serious: No
  Sender: FDA-Public Use
  Company Number: US-PFIZER INC-2013190892

PATIENT
  Age: 63 Year
  Sex: Female
  Weight: 90 kg

DRUGS (3)
  1. XANAX [Suspect]
     Indication: NERVOUSNESS
     Dosage: 1 MG, 3X/DAY
  2. PREMARIN [Suspect]
     Dosage: 0.5 G, 3X/WEEK AT NIGHT
     Route: 067
  3. ZOLOFT [Suspect]
     Indication: DEPRESSION
     Dosage: 200 MG, 1X/DAY

REACTIONS (2)
  - Fall [Unknown]
  - Dizziness [Recovered/Resolved]
